FAERS Safety Report 24412031 (Version 2)
Quarter: 2024Q4

REPORT INFORMATION
  Report Type: Spontaneous
  Country: US (occurrence: US)
  Receive Date: 20241008
  Receipt Date: 20241105
  Transmission Date: 20250114
  Serious: Yes (Hospitalization, Other)
  Sender: PFIZER
  Company Number: US-PFIZER INC-PV202400129510

PATIENT
  Age: 75 Year
  Sex: Female

DRUGS (2)
  1. IBRANCE [Suspect]
     Active Substance: PALBOCICLIB
     Indication: Breast cancer metastatic
     Dosage: 125 MG, CYCLIC, [1 PO DAILY FOR 21 DAYS ON, THE 7 DAYS OFF]
     Route: 048
     Dates: start: 20231010, end: 20240604
  2. IBRANCE [Suspect]
     Active Substance: PALBOCICLIB
     Dosage: 125 MG, CYCLIC, [1 PO DAILY FOR 21 DAYS ON, THEN 7 DAYS OFF]
     Route: 048
     Dates: start: 20240618, end: 20240910

REACTIONS (5)
  - Second primary malignancy [Unknown]
  - Colon cancer [Unknown]
  - Rectal cancer [Unknown]
  - Pleural effusion [Unknown]
  - COVID-19 [Unknown]

NARRATIVE: CASE EVENT DATE: 20240305
